FAERS Safety Report 8863167 (Version 1)
Quarter: 2012Q4

REPORT INFORMATION
  Report Type: 
  Country: US (occurrence: US)
  Receive Date: 20121026
  Receipt Date: 20121026
  Transmission Date: 20130627
  Serious: Yes (Other)
  Sender: FDA-Public Use
  Company Number: US-PFIZER INC-2012265814

PATIENT
  Age: 77 Year
  Sex: Female

DRUGS (5)
  1. LYRICA [Suspect]
     Dosage: 150 mg, 2x/day
     Route: 048
  2. LIPITOR [Suspect]
     Dosage: 40 mg, 1x/day
     Route: 048
  3. LUMIGAN [Concomitant]
     Dosage: UNK
  4. DIOVAN [Concomitant]
     Dosage: UNK
  5. METFORMIN [Concomitant]
     Dosage: UNK

REACTIONS (3)
  - Glaucoma [Unknown]
  - Diabetes mellitus [Unknown]
  - Cardiac disorder [Unknown]
